FAERS Safety Report 7129079-3 (Version None)
Quarter: 2010Q4

REPORT INFORMATION
  Report Type: 
  Country: None (occurrence: None)
  Receive Date: 20101104
  Receipt Date: 20101029
  Transmission Date: 20110411
  Serious: Yes (Hospitalization, Other)
  Sender: FDA-Public Use
  Company Number: 2010SP028727

PATIENT
  Age: 22 Year
  Sex: Female
  Weight: 97.5234 kg

DRUGS (2)
  1. NUVARING [Suspect]
     Indication: PRODUCT USED FOR UNKNOWN INDICATION
  2. MULTI-VITAMIN [Concomitant]

REACTIONS (4)
  - MIGRAINE [None]
  - OVARIAN CYST [None]
  - PULMONARY EMBOLISM [None]
  - THROMBOSIS [None]
